FAERS Safety Report 5536410-9 (Version None)
Quarter: 2007Q4

REPORT INFORMATION
  Report Type: 
  Country: None (occurrence: None)
  Receive Date: 20071204
  Receipt Date: 20071119
  Transmission Date: 20080405
  Serious: Yes (Life-Threatening)
  Sender: FDA-Public Use
  Company Number: SPV1-2007-04941

PATIENT
  Age: 84 Year
  Sex: Male

DRUGS (1)
  1. MIDODRINE HYDROCHLORIDE [Suspect]
     Indication: ORTHOSTATIC HYPOTENSION
     Dosage: 3X/DAYA: TID, ORAL
     Route: 048
     Dates: start: 20070703, end: 20071030

REACTIONS (3)
  - FALL [None]
  - INSOMNIA [None]
  - PSYCHOTIC DISORDER [None]
